FAERS Safety Report 6323931-4 (Version None)
Quarter: 2009Q3

REPORT INFORMATION
  Report Type: 
  Country: None (occurrence: None)
  Receive Date: 20090824
  Receipt Date: 20090817
  Transmission Date: 20100115
  Serious: Yes (Hospitalization, Congenital Anomaly)
  Sender: FDA-Public Use
  Company Number: A0748190A

PATIENT
  Sex: Male
  Weight: 2.5 kg

DRUGS (1)
  1. PAXIL [Suspect]
     Indication: DEPRESSION

REACTIONS (5)
  - AMBLYOPIA [None]
  - ASTIGMATISM [None]
  - DRUG EXPOSURE DURING PREGNANCY [None]
  - EYELID DISORDER [None]
  - EYELID PTOSIS CONGENITAL [None]
